FAERS Safety Report 8315435-4 (Version None)
Quarter: 2012Q2

REPORT INFORMATION
  Report Type: 
  Country: None (occurrence: None)
  Receive Date: 20120426
  Receipt Date: 20120417
  Transmission Date: 20120825
  Serious: Yes (Life-Threatening)
  Sender: FDA-Public Use
  Company Number: JP-AMGEN-JPNCT2012014233

PATIENT
  Age: 63 Year
  Sex: Female
  Weight: 56 kg

DRUGS (12)
  1. EMEND [Concomitant]
     Route: 048
     Dates: end: 20120211
  2. CEFEPIME HYDROCHLORIDE [Concomitant]
     Dosage: 1 G, UNK
     Dates: start: 20120216
  3. TOPOTECAN [Concomitant]
     Indication: COLORECTAL CANCER
     Route: 041
     Dates: start: 20120209, end: 20120209
  4. EMEND [Concomitant]
     Indication: PROPHYLAXIS OF NAUSEA AND VOMITING
     Route: 048
     Dates: start: 20120209
  5. GRANISETRON [Concomitant]
     Indication: PROPHYLAXIS OF NAUSEA AND VOMITING
     Route: 041
     Dates: start: 20120209, end: 20120209
  6. DECADRON [Concomitant]
     Indication: PROPHYLAXIS OF NAUSEA AND VOMITING
     Route: 041
     Dates: start: 20120209, end: 20120209
  7. FLUOROURACIL [Concomitant]
     Indication: COLORECTAL CANCER
     Dosage: 600 MG, Q2WK
     Route: 040
     Dates: start: 20120209, end: 20120209
  8. FLUOROURACIL [Concomitant]
     Dosage: 3500 MG, Q2WK
     Route: 041
     Dates: start: 20120209, end: 20120211
  9. MEROPENEM [Concomitant]
     Dosage: 1 G, UNK
     Dates: start: 20120223
  10. MICAFUNGIN SODIUM [Concomitant]
     Dosage: 50 MG, UNK
     Dates: start: 20120223
  11. PANITUMUMAB [Suspect]
     Indication: COLORECTAL CANCER
     Dosage: UNK, Q2WK
     Route: 041
     Dates: start: 20120209, end: 20120209
  12. LEUCOVORIN CALCIUM [Concomitant]
     Indication: COLORECTAL CANCER
     Route: 041
     Dates: start: 20120209, end: 20120209

REACTIONS (1)
  - INTERSTITIAL LUNG DISEASE [None]
